FAERS Safety Report 5148904-9 (Version None)
Quarter: 2006Q4

REPORT INFORMATION
  Report Type: 
  Country: None (occurrence: None)
  Receive Date: 20061108
  Receipt Date: 20061030
  Transmission Date: 20070319
  Serious: Yes (Hospitalization)
  Sender: FDA-Public Use
  Company Number: 163-21880-06101426

PATIENT
  Age: 75 Year
  Sex: Male

DRUGS (1)
  1. REVLIMID [Suspect]
     Indication: MULTIPLE MYELOMA
     Dosage: TAKE 1 CAPSULE M-F ONLY, ORAL
     Route: 048
     Dates: start: 20060728, end: 20061008

REACTIONS (2)
  - INTESTINAL OBSTRUCTION [None]
  - PROTEIN TOTAL DECREASED [None]
